FAERS Safety Report 5300784-4 (Version None)
Quarter: 2007Q2

REPORT INFORMATION
  Report Type: 
  Country: None (occurrence: None)
  Receive Date: 20070418
  Receipt Date: 20061204
  Transmission Date: 20071010
  Serious: Yes (Hospitalization)
  Sender: FDA-Public Use
  Company Number: 2006AP05800

PATIENT
  Age: 23115 Day
  Sex: Male
  Weight: 70 kg

DRUGS (7)
  1. ZOLADEX [Suspect]
     Indication: PROSTATE CANCER
     Route: 058
     Dates: start: 20030523
  2. INDOMETHACIN [Concomitant]
     Indication: PAIN
  3. SERETIDE ACCUHALER [Concomitant]
  4. VENTOLIN [Concomitant]
  5. COMBIVIR [Concomitant]
     Indication: HIV INFECTION
  6. AROPAX [Concomitant]
     Indication: DEPRESSION
  7. COSUDEX [Concomitant]
     Indication: PROSTATE CANCER

REACTIONS (1)
  - MAJOR DEPRESSION [None]
